FAERS Safety Report 8501074-9 (Version None)
Quarter: 2012Q3

REPORT INFORMATION
  Report Type: 
  Country: None (occurrence: None)
  Receive Date: 20120710
  Receipt Date: 20120702
  Transmission Date: 20120928
  Serious: No
  Sender: FDA-Public Use
  Company Number: US-B.I. PHARMACEUTICALS,INC./RIDGEFIELD-2012-BP-14869BP

PATIENT
  Sex: Male

DRUGS (13)
  1. COREG [Concomitant]
     Indication: CARDIAC DISORDER
     Dosage: 6.25 MG
     Route: 048
  2. DIGOXIN [Concomitant]
     Route: 048
  3. SPIRIVA [Suspect]
     Indication: CHRONIC OBSTRUCTIVE PULMONARY DISEASE
     Dosage: 18 MCG
     Route: 055
     Dates: start: 20120301
  4. PROTONIX [Concomitant]
     Dosage: 20 MG
     Route: 048
  5. FURESOMIDE [Concomitant]
     Dosage: 40 MG
     Route: 048
  6. ISOSORBIDE [Concomitant]
     Indication: CARDIAC DISORDER
     Dosage: 30 MG
     Route: 048
  7. GLIMEPIRIDE [Concomitant]
     Indication: DIABETES MELLITUS
     Dosage: 4 MG
     Route: 048
  8. RANEXA [Concomitant]
     Indication: STENT PLACEMENT
     Dosage: 2000 MG
     Route: 048
  9. CRESTOR [Concomitant]
     Indication: CARDIAC DISORDER
     Dosage: 20 MG
     Route: 048
  10. WARFARIN SODIUM [Concomitant]
     Indication: CARDIAC DISORDER
     Dosage: 3 MG
     Route: 048
  11. UROXATROL [Concomitant]
     Indication: PROSTATIC DISORDER
     Dosage: 10 MG
     Route: 048
  12. PLAVIX [Concomitant]
     Indication: CARDIAC DISORDER
     Dosage: 75 MG
     Route: 048
  13. DILTIAGZEM [Concomitant]
     Indication: PROSTATIC DISORDER
     Dosage: 180 ML
     Route: 048

REACTIONS (1)
  - BACK PAIN [None]
